FAERS Safety Report 22537106 (Version 1)
Quarter: 2023Q2

REPORT INFORMATION
  Report Type: Report from Study
  Country: MX (occurrence: MX)
  Receive Date: 20230608
  Receipt Date: 20230608
  Transmission Date: 20230722
  Serious: Yes (Hospitalization, Other)
  Sender: FDA-Public Use
  Company Number: MX-002147023-NVSC2023MX092143

PATIENT
  Age: 56 Year
  Sex: Female
  Weight: 87 kg

DRUGS (5)
  1. TASIGNA [Suspect]
     Active Substance: NILOTINIB
     Indication: Chronic myeloid leukaemia
     Dosage: UNK
     Route: 065
  2. TASIGNA [Suspect]
     Active Substance: NILOTINIB
     Dosage: 3 DOSAGE FORM, QD (2 IN THE MORNING AND 1 AT NIGHT)
     Route: 048
     Dates: start: 202110
  3. TASIGNA [Suspect]
     Active Substance: NILOTINIB
     Dosage: 3 DOSAGE FORM, QD (2 IN THE MORNING AND 1 AT NIGHT)
     Route: 048
     Dates: start: 202210
  4. TASIGNA [Suspect]
     Active Substance: NILOTINIB
     Dosage: UNK
     Route: 048
  5. DASATINIB [Concomitant]
     Active Substance: DASATINIB
     Indication: Product used for unknown indication
     Dosage: UNK
     Route: 065

REACTIONS (19)
  - COVID-19 [Unknown]
  - Hepatic infection [Unknown]
  - Urinary tract infection [Unknown]
  - Hepatic pain [Unknown]
  - Hyperhidrosis [Unknown]
  - Synovial cyst [Unknown]
  - Breast pain [Unknown]
  - Constipation [Unknown]
  - Illness [Unknown]
  - Body fat disorder [Unknown]
  - Feeling abnormal [Unknown]
  - Pain [Unknown]
  - Pruritus [Unknown]
  - Diarrhoea [Unknown]
  - Weight increased [Unknown]
  - Exercise tolerance decreased [Unknown]
  - Blood triglycerides abnormal [Unknown]
  - Blood cholesterol abnormal [Unknown]
  - Labelled drug-food interaction medication error [Unknown]

NARRATIVE: CASE EVENT DATE: 20221001
